FAERS Safety Report 7162303-X (Version None)
Quarter: 2010Q4

REPORT INFORMATION
  Report Type: 
  Country: None (occurrence: None)
  Receive Date: 20101215
  Receipt Date: 20101207
  Transmission Date: 20110411
  Serious: Yes (Other)
  Sender: FDA-Public Use
  Company Number: AU-ROCHE-746683

PATIENT
  Sex: Male
  Weight: 75 kg

DRUGS (2)
  1. ISOTRETINOIN [Suspect]
     Indication: ACNE
     Route: 048
     Dates: start: 20100722, end: 20101001
  2. ISOTRETINOIN [Suspect]
     Route: 048
     Dates: end: 20101104

REACTIONS (2)
  - HEPATITIS [None]
  - LIVER FUNCTION TEST ABNORMAL [None]
